FAERS Safety Report 5238068-5 (Version None)
Quarter: 2007Q1

REPORT INFORMATION
  Report Type: 
  Country: None (occurrence: None)
  Receive Date: 20070209
  Receipt Date: 20070209
  Transmission Date: 20070707
  Serious: No
  Sender: FDA-Public Use
  Company Number: None

PATIENT
  Age: 24 Year
  Sex: Male
  Weight: 74.8435 kg

DRUGS (1)
  1. GUAIFENESIN [Suspect]
     Dosage: PO
     Route: 048
     Dates: start: 20070206, end: 20070208

REACTIONS (1)
  - DRUG INEFFECTIVE [None]
